FAERS Safety Report 7478688-0 (Version None)
Quarter: 2011Q2

REPORT INFORMATION
  Report Type: 
  Country: None (occurrence: None)
  Receive Date: 20110513
  Receipt Date: 20110504
  Transmission Date: 20111010
  Serious: Yes (Hospitalization)
  Sender: FDA-Public Use
  Company Number: US-ASTRAZENECA-2010SE32303

PATIENT
  Age: 89 Year
  Sex: Female

DRUGS (14)
  1. TOPROL-XL [Suspect]
     Route: 048
  2. COREG [Concomitant]
  3. NEXIUM [Suspect]
     Route: 048
  4. IMDUR [Concomitant]
  5. PRILOSEC [Concomitant]
  6. LIPITOR [Concomitant]
  7. LISINOPRIL [Concomitant]
  8. ASPIRIN [Concomitant]
  9. XANAX [Concomitant]
  10. NITROGLYCERIN [Concomitant]
  11. LASIX [Concomitant]
  12. POTASSIUM [Concomitant]
     Dosage: 20 MEQ
  13. THERAGRAM [Concomitant]
  14. PROZAC [Concomitant]

REACTIONS (12)
  - HIATUS HERNIA [None]
  - ULCER [None]
  - CARDIAC DISORDER [None]
  - CEREBROVASCULAR ACCIDENT [None]
  - HYPERTENSION [None]
  - NASOPHARYNGITIS [None]
  - DRUG DOSE OMISSION [None]
  - SINUS DISORDER [None]
  - OESOPHAGEAL DISORDER [None]
  - THROMBOPHLEBITIS [None]
  - CARDIAC FAILURE CONGESTIVE [None]
  - BLOOD PRESSURE DIASTOLIC INCREASED [None]
